FAERS Safety Report 6656483-X (Version None)
Quarter: 2010Q1

REPORT INFORMATION
  Report Type: 
  Country: None (occurrence: None)
  Receive Date: 20100329
  Receipt Date: 20100317
  Transmission Date: 20100710
  Serious: Yes (Other)
  Sender: FDA-Public Use
  Company Number: CA-PFIZER INC-2010023397

PATIENT
  Age: 55 Year
  Sex: Female

DRUGS (9)
  1. CHAMPIX [Suspect]
     Indication: SMOKING CESSATION THERAPY
     Dosage: 0.5 MG, 1X/DAY
     Route: 048
     Dates: start: 20100211, end: 20100201
  2. CHAMPIX [Suspect]
     Dosage: 0.5 MG, 2X/DAY
     Dates: start: 20100201, end: 20100201
  3. CHAMPIX [Suspect]
     Dosage: 1 MG, 2X/DAY
     Dates: start: 20100201, end: 20100221
  4. ADVAIR DISKUS 100/50 [Concomitant]
     Indication: ASTHMA
     Dosage: 125 UG, 2X/DAY
     Route: 055
     Dates: start: 20100206
  5. RANITIDINE [Concomitant]
     Indication: ABDOMINAL DISCOMFORT
     Dosage: 150 MG, 2X/DAY
     Dates: start: 20091222
  6. SYNTHROID [Concomitant]
     Indication: HYPOTHYROIDISM
     Dosage: 0.075 MG, 1X/DAY
     Dates: start: 20070523
  7. NISTATIN [Concomitant]
     Dosage: UNK
     Dates: start: 20100201
  8. CORTISONE [Concomitant]
     Dosage: UNK
  9. CITALOPRAM [Concomitant]
     Indication: DEPRESSION
     Dosage: 30 MG (1.5 X 20MG TABLETS DAILY)
     Dates: start: 20090414

REACTIONS (4)
  - ASTHENIA [None]
  - FEELING ABNORMAL [None]
  - FLUSHING [None]
  - SENSATION OF BLOOD FLOW [None]
